FAERS Safety Report 5226257-5 (Version None)
Quarter: 2007Q1

REPORT INFORMATION
  Report Type: 
  Country: None (occurrence: None)
  Receive Date: 20070201
  Receipt Date: 20070126
  Transmission Date: 20070707
  Serious: Yes (Other)
  Sender: FDA-Public Use
  Company Number: 2005UW19271

PATIENT
  Age: 61 Year
  Sex: Female
  Weight: 63.5 kg

DRUGS (8)
  1. ARIMIDEX [Suspect]
     Indication: BREAST CANCER
     Route: 048
     Dates: start: 20051201
  2. GLYBURIDE [Concomitant]
  3. METFORMIN HCL [Concomitant]
  4. VYTORIN [Concomitant]
  5. FOSAMAX [Concomitant]
  6. CALCIUM [Concomitant]
  7. XALATAN [Concomitant]
  8. ALPHAGAN P [Concomitant]

REACTIONS (3)
  - ABNORMAL DREAMS [None]
  - GLAUCOMA [None]
  - INSOMNIA [None]
